FAERS Safety Report 17955052 (Version 1)
Quarter: 2020Q2

REPORT INFORMATION
  Report Type: Other
  Country: DE (occurrence: DE)
  Receive Date: 20200629
  Receipt Date: 20200629
  Transmission Date: 20200714
  Serious: No
  Sender: FDA-Public Use
  Company Number: DE-LUPIN PHARMACEUTICALS INC.-2019-03712

PATIENT
  Age: 65 Year
  Sex: Male

DRUGS (1)
  1. SIMVASTATIN. [Suspect]
     Active Substance: SIMVASTATIN
     Indication: PRODUCT USED FOR UNKNOWN INDICATION
     Dosage: 20 MILLIGRAM, IN THE EVENING
     Route: 048
     Dates: start: 2012, end: 20190401

REACTIONS (7)
  - Muscular weakness [Recovering/Resolving]
  - Lipase increased [Recovered/Resolved]
  - Faecal volume increased [Not Recovered/Not Resolved]
  - Fatigue [Recovering/Resolving]
  - Frequent bowel movements [Not Recovered/Not Resolved]
  - Myalgia [Recovering/Resolving]
  - Diarrhoea [Not Recovered/Not Resolved]

NARRATIVE: CASE EVENT DATE: 20171201
